FAERS Safety Report 4345143-6 (Version None)
Quarter: 2004Q2

REPORT INFORMATION
  Report Type: 
  Country: None (occurrence: None)
  Receive Date: 20040421
  Receipt Date: 20040421
  Transmission Date: 20050107
  Serious: Yes (Hospitalization, Other)
  Sender: FDA-Public Use
  Company Number: None

PATIENT
  Age: 72 Year
  Sex: Male
  Weight: 122 kg

DRUGS (11)
  1. CYTARABINE [Suspect]
     Indication: ACUTE MYELOID LEUKAEMIA
     Dosage: 100MG/M2/OTHER
     Dates: start: 20030514
  2. MDR-INTRAVENOUS FORMULATION [Suspect]
     Indication: ACUTE LEUKAEMIA
     Dosage: 550 MG/M2/OTHER
     Dates: start: 20030514
  3. DAUNORUBICIN HCL [Suspect]
     Indication: ACUTE MYELOID LEUKAEMIA
     Dosage: 45 MG/M2/OTHER
     Dates: start: 20030514
  4. NORVASC [Concomitant]
  5. IMODIUM [Concomitant]
  6. PREDNISONE [Concomitant]
  7. LISINOPRIL [Concomitant]
  8. MICRO K EXTENCAPS (POTASSIUM CHLORIDE) [Concomitant]
  9. PREVACID [Concomitant]
  10. SYNTHROID [Concomitant]
  11. MEGACE [Concomitant]

REACTIONS (27)
  - ABDOMINAL PAIN [None]
  - ASTHENIA [None]
  - BRAIN NEOPLASM [None]
  - CANDIDURIA [None]
  - CSF PROTEIN INCREASED [None]
  - DECUBITUS ULCER [None]
  - DEHYDRATION [None]
  - DYSPHAGIA [None]
  - EATING DISORDER [None]
  - ENCEPHALOPATHY [None]
  - ENTEROCOCCAL SEPSIS [None]
  - FAILURE TO THRIVE [None]
  - GLYCOPEPTIDE ANTIBIOTIC RESISTANT ENTEROCOCCAL INFECTION [None]
  - HYPERREFLEXIA [None]
  - HYPERTENSION [None]
  - HYPONATRAEMIA [None]
  - HYPOVITAMINOSIS [None]
  - LEUKOCYTOSIS [None]
  - MENTAL STATUS CHANGES [None]
  - ORAL CANDIDIASIS [None]
  - PAIN [None]
  - RESPIRATORY RATE INCREASED [None]
  - SINUSITIS [None]
  - SOMNOLENCE [None]
  - SYNCOPE [None]
  - TREMOR [None]
  - URINARY TRACT INFECTION ENTEROCOCCAL [None]
